FAERS Safety Report 24039777 (Version 1)
Quarter: 2024Q3

REPORT INFORMATION
  Report Type: Spontaneous
  Country: US (occurrence: US)
  Receive Date: 20240702
  Receipt Date: 20240702
  Transmission Date: 20241017
  Serious: Yes (Other)
  Sender: RANBAXY
  Company Number: US-SUN PHARMACEUTICAL INDUSTRIES LTD-2024R1-453769

PATIENT
  Age: 48 Year
  Sex: Female

DRUGS (4)
  1. GABAPENTIN [Suspect]
     Active Substance: GABAPENTIN
     Indication: Lymphoedema
     Route: 065
  2. BUPIVACAINE [Suspect]
     Active Substance: BUPIVACAINE\BUPIVACAINE HYDROCHLORIDE
     Indication: Lymphoedema
     Route: 065
  3. TIZANIDINE [Suspect]
     Active Substance: TIZANIDINE
     Indication: Lymphoedema
     Route: 065
  4. DICLOFENAC [Suspect]
     Active Substance: DICLOFENAC
     Indication: Lymphoedema
     Route: 065

REACTIONS (1)
  - Treatment failure [Unknown]
